FAERS Safety Report 8196838-8 (Version None)
Quarter: 2012Q1

REPORT INFORMATION
  Report Type: 
  Country: None (occurrence: None)
  Receive Date: 20120309
  Receipt Date: 20120228
  Transmission Date: 20120608
  Serious: Yes (Other)
  Sender: FDA-Public Use
  Company Number: US-BAYER-2012-014034

PATIENT
  Sex: Female

DRUGS (2)
  1. BEYAZ [Suspect]
     Indication: OVARIAN CYST
  2. YAZ [Suspect]
     Indication: OVARIAN CYST

REACTIONS (2)
  - WEIGHT INCREASED [None]
  - INCREASED TENDENCY TO BRUISE [None]
